FAERS Safety Report 8948397 (Version 1)
Quarter: 2012Q4

REPORT INFORMATION
  Report Type: 
  Country: US (occurrence: US)
  Receive Date: 20121206
  Receipt Date: 20121206
  Transmission Date: 20130627
  Serious: Yes (Other)
  Sender: FDA-Public Use
  Company Number: US-SANOFI-AVENTIS-2012SA088689

PATIENT
  Sex: Female

DRUGS (2)
  1. PLAVIX [Suspect]
     Route: 048
  2. ASPIRIN [Suspect]
     Route: 065

REACTIONS (6)
  - Renal failure [Unknown]
  - Visual impairment [Unknown]
  - Hand deformity [Unknown]
  - Thinking abnormal [Unknown]
  - Nervousness [Unknown]
  - Cerebrovascular accident [Unknown]
